FAERS Safety Report 11889619 (Version 6)
Quarter: 2017Q2

REPORT INFORMATION
  Report Type: Spontaneous
  Country: US (occurrence: US)
  Receive Date: 20160105
  Receipt Date: 20170609
  Transmission Date: 20170829
  Serious: Yes (Hospitalization)
  Sender: FDA-Public Use
  Company Number: US-PFIZER INC-2015477634

PATIENT
  Age: 50 Year
  Sex: Female

DRUGS (16)
  1. LYRICA [Suspect]
     Active Substance: PREGABALIN
     Indication: PARAESTHESIA
     Dosage: 100 MG, 4X/DAY
     Route: 048
     Dates: start: 20161121
  2. VENTOLIN HFA [Concomitant]
     Active Substance: ALBUTEROL SULFATE
     Indication: WHEEZING
  3. LIORESAL [Concomitant]
     Active Substance: BACLOFEN
     Dosage: 20 MG, 4X/DAY
     Route: 048
  4. ALKA-SELTZER /00002701/ [Concomitant]
     Active Substance: ASPIRIN
     Dosage: UNK
     Route: 048
  5. VENTOLIN HFA [Concomitant]
     Active Substance: ALBUTEROL SULFATE
     Indication: DYSPNOEA
     Dosage: 2 PUFFS INTO THE LUNGS EVERY 4 HOURS AS NEEDED
     Route: 055
  6. LYRICA [Suspect]
     Active Substance: PREGABALIN
     Indication: BACK PAIN
  7. KLONOPIN [Concomitant]
     Active Substance: CLONAZEPAM
     Indication: ANXIETY
     Dosage: 0.5 MG, TWO TIMES DAILY AS NEEDED
     Route: 048
  8. LEXAPRO [Concomitant]
     Active Substance: ESCITALOPRAM OXALATE
     Dosage: 10 MG, DAILY
     Route: 048
  9. LASIX [Concomitant]
     Active Substance: FUROSEMIDE
     Dosage: 80 MG, DAILY
     Route: 048
  10. VOLTAREN [Concomitant]
     Active Substance: DICLOFENAC SODIUM
     Dosage: 50 MG, 3X/DAY
     Route: 048
  11. PERCOCET [Concomitant]
     Active Substance: ACETAMINOPHEN\OXYCODONE HYDROCHLORIDE
     Indication: PAIN
     Dosage: 1 TABLET EVERY 6 HOURS AS NEEDED
     Route: 048
  12. LYRICA [Suspect]
     Active Substance: PREGABALIN
     Indication: HYPOAESTHESIA
     Dosage: 75 MG, 4X/DAY
     Route: 048
     Dates: start: 2015
  13. LYRICA [Suspect]
     Active Substance: PREGABALIN
     Indication: PARAESTHESIA
  14. MELATONIN [Concomitant]
     Active Substance: MELATONIN
     Dosage: 1 MG, 1X/DAY  (1 TABLET ONE HOUR BEFORE BEDTIME)
     Route: 048
  15. GLYCERINE [Concomitant]
     Active Substance: GLYCERIN
     Indication: DRY MOUTH
     Dosage: 35%, AS NEEDED(1 SPRAY AS NEEDED)
  16. LYRICA [Suspect]
     Active Substance: PREGABALIN
     Indication: PAIN
     Dosage: 100 MG, 4X/DAY
     Route: 048
     Dates: start: 20170601

REACTIONS (5)
  - Drug ineffective [Unknown]
  - Intentional product use issue [Unknown]
  - Off label use [Unknown]
  - Contusion [Recovered/Resolved]
  - Fall [Recovered/Resolved]

NARRATIVE: CASE EVENT DATE: 20160823
